FAERS Safety Report 7407103-8 (Version None)
Quarter: 2011Q2

REPORT INFORMATION
  Report Type: 
  Country: None (occurrence: None)
  Receive Date: 20110411
  Receipt Date: 20110406
  Transmission Date: 20111010
  Serious: Yes (Other)
  Sender: FDA-Public Use
  Company Number: CHNY2007GB02753

PATIENT
  Age: 69 Year
  Sex: Male

DRUGS (2)
  1. NICOTINELL TTS [Suspect]
     Indication: SMOKING CESSATION THERAPY
     Dosage: 21 MG, QD
     Route: 062
  2. NICOTINELL TTS [Suspect]
     Indication: DRUG WITHDRAWAL MAINTENANCE THERAPY

REACTIONS (4)
  - TREATMENT NONCOMPLIANCE [None]
  - ISCHAEMIC STROKE [None]
  - OVERDOSE [None]
  - DRUG INEFFECTIVE [None]
